FAERS Safety Report 4860655-4 (Version None)
Quarter: 2005Q4

REPORT INFORMATION
  Report Type: 
  Country: None (occurrence: None)
  Receive Date: 20051216
  Receipt Date: 20051212
  Transmission Date: 20060501
  Serious: Yes (Life-Threatening, Hospitalization, Other)
  Sender: FDA-Public Use
  Company Number: 200513853BCC

PATIENT
  Age: 53 Year
  Sex: Female
  Weight: 81.6475 kg

DRUGS (6)
  1. ALEVE (CAPLET) [Suspect]
     Indication: PAIN
     Dosage: SEE IMAGE
     Route: 048
     Dates: start: 20050501, end: 20050801
  2. STEROIDS (CORTICOSTEROIDS) [Suspect]
     Indication: COLITIS
  3. VITAMINS NOS [Concomitant]
  4. CALCIUM GLUCONATE [Concomitant]
  5. MULTIVITAMIN AND MINERAL SUPPLEMENT [Concomitant]
  6. ODORLESS GARLIC [Concomitant]

REACTIONS (6)
  - ANAEMIA [None]
  - GASTRIC ULCER PERFORATION [None]
  - PNEUMONIA [None]
  - PNEUMOPERITONEUM [None]
  - POST PROCEDURAL COMPLICATION [None]
  - RESPIRATORY FAILURE [None]
